FAERS Safety Report 4668947-9 (Version None)
Quarter: 2005Q2

REPORT INFORMATION
  Report Type: 
  Country: None (occurrence: None)
  Receive Date: 20050523
  Receipt Date: 20050322
  Transmission Date: 20051028
  Serious: Yes (Disabling)
  Sender: FDA-Public Use
  Company Number: US-GLAXOSMITHKLINE-A0550853A

PATIENT
  Age: 48 Year
  Sex: Male

DRUGS (4)
  1. COREG [Suspect]
     Indication: CARDIAC FAILURE CONGESTIVE
     Route: 048
  2. LISINOPRIL [Concomitant]
     Indication: CARDIAC FAILURE CONGESTIVE
     Dosage: 40MG PER DAY
  3. ASPIRIN [Concomitant]
     Dosage: 81MG PER DAY
  4. LASIX [Concomitant]
     Indication: CARDIAC FAILURE CONGESTIVE
     Dosage: 80MG TWICE PER DAY

REACTIONS (8)
  - ABDOMINAL PAIN [None]
  - CHILLS [None]
  - COLD SWEAT [None]
  - CONSTIPATION [None]
  - DIZZINESS [None]
  - FEELING COLD [None]
  - FLATULENCE [None]
  - INFLUENZA LIKE ILLNESS [None]
